FAERS Safety Report 6890160-5 (Version None)
Quarter: 2010Q3

REPORT INFORMATION
  Report Type: 
  Country: None (occurrence: None)
  Receive Date: 20100730
  Receipt Date: 20080816
  Transmission Date: 20110219
  Serious: No
  Sender: FDA-Public Use
  Company Number: US-PFIZER INC-2008058460

PATIENT
  Age: 36 Year
  Sex: Male
  Weight: 72.57 kg

DRUGS (2)
  1. LIPITOR [Suspect]
     Indication: DYSLIPIDAEMIA
     Route: 048
  2. LYRICA [Concomitant]

REACTIONS (4)
  - INSOMNIA [None]
  - POOR QUALITY SLEEP [None]
  - RESTLESSNESS [None]
  - SLEEP STUDY ABNORMAL [None]
